FAERS Safety Report 17413858 (Version 1)
Quarter: 2020Q1

REPORT INFORMATION
  Report Type: Spontaneous
  Country: US (occurrence: US)
  Receive Date: 20200130
  Receipt Date: 20200130
  Transmission Date: 20200409
  Serious: Yes (Life-Threatening, Hospitalization)
  Sender: FDA-Public Use
  Company Number: None

PATIENT
  Age: 85 Year
  Sex: Male
  Weight: 103 kg

DRUGS (1)
  1. NEOSTIGMINE (NEOSTIGMINE METHYLSULFATE 1MG/ML INJ) [Suspect]
     Active Substance: NEOSTIGMINE METHYLSULFATE
     Indication: ILEUS
     Route: 042
     Dates: start: 20200113, end: 20200113

REACTIONS (3)
  - Intestinal perforation [None]
  - Urinary retention [None]
  - Acute kidney injury [None]

NARRATIVE: CASE EVENT DATE: 20200116
